FAERS Safety Report 9026777 (Version 2)
Quarter: 2013Q1

REPORT INFORMATION
  Report Type: Report from Study
  Country: PL (occurrence: PL)
  Receive Date: 20130123
  Receipt Date: 20130214
  Transmission Date: 20140127
  Serious: Yes (Hospitalization)
  Sender: FDA-Public Use
  Company Number: PL-ASTELLAS-2013US000780

PATIENT
  Age: 7 Year
  Sex: Male
  Weight: 30 kg

DRUGS (3)
  1. TACROLIMUS OINTMENT [Suspect]
     Indication: DERMATITIS ATOPIC
     Dosage: 0.1 %, UNKNOWN/D
     Route: 061
     Dates: start: 20051207
  2. SINGULAIR [Concomitant]
     Indication: HYPERSENSITIVITY
     Dosage: 4 MG, X 1
     Route: 048
     Dates: start: 201106
  3. XYZAL [Concomitant]
     Indication: HYPERSENSITIVITY
     Dosage: 5 MG, X 1
     Route: 048
     Dates: start: 201105

REACTIONS (2)
  - Off label use [Unknown]
  - Adenotonsillectomy [Recovered/Resolved]
